FAERS Safety Report 7211709-9 (Version None)
Quarter: 2011Q1

REPORT INFORMATION
  Report Type: 
  Country: None (occurrence: None)
  Receive Date: 20110105
  Receipt Date: 20101228
  Transmission Date: 20110831
  Serious: Yes (Death, Life-Threatening, Hospitalization, Other)
  Sender: FDA-Public Use
  Company Number: DE-PFIZER INC-2010010763

PATIENT
  Age: 65 Year
  Sex: Female
  Weight: 45 kg

DRUGS (15)
  1. FOLSAN [Concomitant]
     Dosage: 5 MG, 1X/DAY
  2. PROGRAF [Concomitant]
     Indication: RENAL TRANSPLANT
     Dosage: 1 MG, 2X/DAY
  3. PREDNISOLONE [Concomitant]
     Dosage: 5 MG, 1X/DAY
  4. ZYVOX [Suspect]
     Indication: TRANSPLANT ABSCESS
     Dosage: 600 MG, 2X/DAY
     Route: 042
     Dates: start: 20091221, end: 20100114
  5. SIMVASTATIN [Concomitant]
     Dosage: 40 MG, 1X/DAY
  6. VIGANTOLETTEN ^MERCK^ [Concomitant]
     Dosage: 500 MG, 1X/DAY
  7. ZYVOX [Suspect]
     Dosage: 600 MG, 2X/DAY
     Route: 048
     Dates: start: 20100115, end: 20100127
  8. RAPAMUNE [Suspect]
  9. PANTOPRAZOLE [Concomitant]
     Dosage: 40 MG, 1X/DAY
  10. PHENPROCOUMON [Concomitant]
  11. BISOPROLOL [Concomitant]
     Dosage: 2.5 MG, 1X/DAY
  12. GABAPENTIN [Concomitant]
     Dosage: 100 MG, 1X/DAY
  13. LEVOTHYROXINE [Concomitant]
     Dosage: 125 UG, 1X/DAY
  14. FUROSEMID [Concomitant]
     Dosage: 40 MG, 1X/DAY
  15. GLIMEPIRIDE [Concomitant]
     Dosage: 1 MG, 1X/DAY

REACTIONS (9)
  - LACTIC ACIDOSIS [None]
  - CARDIAC FAILURE [None]
  - UROSEPSIS [None]
  - MITRAL VALVE INCOMPETENCE [None]
  - RENAL FAILURE [None]
  - MULTI-ORGAN FAILURE [None]
  - TACHYARRHYTHMIA [None]
  - PNEUMONITIS [None]
  - RENAL ABSCESS [None]
